FAERS Safety Report 9010391 (Version 1)
Quarter: 2013Q1

REPORT INFORMATION
  Report Type: Spontaneous
  Country: US (occurrence: US)
  Receive Date: 20130109
  Receipt Date: 20130109
  Transmission Date: 20140127
  Serious: Yes (Death)
  Sender: FDA-Public Use
  Company Number: US-ASTRAZENECA-2013SE01396

PATIENT
  Age: 86 Year
  Sex: Male

DRUGS (8)
  1. OMEPRAZOLE [Suspect]
     Route: 048
  2. METOPROLOL [Suspect]
     Route: 048
  3. METFORMIN [Suspect]
     Route: 048
  4. POTASSIUM CHLORIDE [Suspect]
     Route: 048
  5. VERAPAMIL [Suspect]
     Route: 048
  6. PRAZOSIN [Suspect]
     Route: 048
  7. GLYBURIDE [Suspect]
     Route: 048
  8. FUROSEMIDE [Suspect]
     Route: 048

REACTIONS (2)
  - Toxicity to various agents [Fatal]
  - Medication error [Fatal]
